FAERS Safety Report 4299792-4 (Version None)
Quarter: 2004Q1

REPORT INFORMATION
  Report Type: 
  Country: None (occurrence: None)
  Receive Date: 20040126
  Receipt Date: 20031118
  Transmission Date: 20041129
  Serious: No
  Sender: FDA-Public Use
  Company Number: USA031152806

PATIENT
  Age: 14 Year
  Sex: Male
  Weight: 91 kg

DRUGS (1)
  1. STRATTERA [Suspect]
     Dosage: 25 MG/DAY

REACTIONS (2)
  - FATIGUE [None]
  - HALLUCINATION, VISUAL [None]
